FAERS Safety Report 7581444-6 (Version None)
Quarter: 2011Q2

REPORT INFORMATION
  Report Type: 
  Country: None (occurrence: None)
  Receive Date: 20110629
  Receipt Date: 20110616
  Transmission Date: 20111010
  Serious: Yes (Other)
  Sender: FDA-Public Use
  Company Number: PHHY2011US55875

PATIENT
  Sex: Female
  Weight: 84.354 kg

DRUGS (12)
  1. ULTRAM [Concomitant]
     Dosage: 1 TO 2 TABLETS OF50 MG, Q4H
     Route: 048
     Dates: start: 20110607
  2. LORTAB [Concomitant]
     Dosage: 1 DF, Q4H
     Route: 048
     Dates: start: 20110601
  3. REQUIP [Concomitant]
     Dosage: 1
  4. REQUIP [Concomitant]
     Dosage: 1.5 DF, TID
  5. LASIX [Concomitant]
     Dosage: 1 DF, DAILY
     Route: 048
     Dates: start: 20110427
  6. POTASSIUM CHLORIDE [Concomitant]
     Dosage: 1 DF, DAILY
     Route: 048
     Dates: start: 20110126
  7. OXYGEN [Concomitant]
     Dosage: 2 L/NC AT NIGHT
     Dates: start: 20110517
  8. REQUIP [Concomitant]
     Dosage: 0.5 DF, TID
     Dates: start: 20110517
  9. RECLAST [Suspect]
     Indication: OSTEOPOROSIS
     Dosage: 5 MG/100ML ONCE YEARLY
     Route: 042
     Dates: start: 20110527
  10. ULTRAM [Concomitant]
     Dosage: 1 TO 2 TABLETS OF50 MG, Q4H
     Route: 048
     Dates: start: 20110427
  11. FLUOXETINE HCL [Concomitant]
     Dosage: 1 DF, DAILY
     Route: 048
     Dates: start: 20070114
  12. VITAMIN D [Concomitant]
     Dosage: 1 DF, TWICE A WEEK
     Route: 048
     Dates: start: 20110413

REACTIONS (3)
  - BONE PAIN [None]
  - TORTICOLLIS [None]
  - NECK PAIN [None]
